FAERS Safety Report 8115149-X (Version None)
Quarter: 2012Q1

REPORT INFORMATION
  Report Type: 
  Country: None (occurrence: None)
  Receive Date: 20120201
  Receipt Date: 20111220
  Transmission Date: 20120608
  Serious: Yes (Other)
  Sender: FDA-Public Use
  Company Number: 2011IP000202

PATIENT
  Age: 82 Year
  Sex: Female

DRUGS (2)
  1. PREDNISOLONE ACETATE OPHTHALMIC SUSPENSION/DROPS [Suspect]
     Indication: CATARACT OPERATION
     Dosage: 2 GTT: TID; OPH
     Route: 047
     Dates: start: 20110901, end: 20110924
  2. VIGAMOX [Suspect]
     Indication: CATARACT OPERATION
     Dosage: 2 GTT; TID; OPH
     Route: 047
     Dates: start: 20110901, end: 20110924

REACTIONS (6)
  - HYPOTONY OF EYE [None]
  - VISUAL ACUITY REDUCED [None]
  - EYE PAIN [None]
  - BLINDNESS UNILATERAL [None]
  - ENDOPHTHALMITIS [None]
  - ATROPHY OF GLOBE [None]
